FAERS Safety Report 11705358 (Version 1)
Quarter: 2015Q4

REPORT INFORMATION
  Report Type: Report from Study
  Country: US (occurrence: US)
  Receive Date: 20151106
  Receipt Date: 20151106
  Transmission Date: 20160304
  Serious: Yes (Death, Other)
  Sender: FDA-Public Use
  Company Number: US-GILEAD-2015-0180905

PATIENT
  Age: 65 Year
  Sex: Male

DRUGS (22)
  1. GLIPIZIDE. [Concomitant]
     Active Substance: GLIPIZIDE
  2. FLUTICASONE [Concomitant]
     Active Substance: FLUTICASONE\FLUTICASONE PROPIONATE
  3. VITAMIN D                          /00107901/ [Concomitant]
     Active Substance: ERGOCALCIFEROL
  4. AMBRISENTAN [Suspect]
     Active Substance: AMBRISENTAN
     Indication: PULMONARY HYPERTENSION
     Dosage: 10 MG, QD
     Route: 065
     Dates: start: 20120308, end: 20151005
  5. ATACAND [Concomitant]
     Active Substance: CANDESARTAN CILEXETIL
  6. SERTRALINE [Concomitant]
     Active Substance: SERTRALINE HYDROCHLORIDE
  7. GABAPENTIN. [Concomitant]
     Active Substance: GABAPENTIN
  8. TRAZODONE [Concomitant]
     Active Substance: TRAZODONE HYDROCHLORIDE
  9. COUMADIN [Concomitant]
     Active Substance: WARFARIN SODIUM
  10. FUROSEMIDE. [Concomitant]
     Active Substance: FUROSEMIDE
  11. DIGOXIN. [Concomitant]
     Active Substance: DIGOXIN
  12. FERROUS SULFATE [Concomitant]
     Active Substance: FERROUS SULFATE\FERROUS SULFATE, DRIED
  13. CARDIZEM [Concomitant]
     Active Substance: DILTIAZEM HYDROCHLORIDE
  14. POTASSIUM [Concomitant]
     Active Substance: POTASSIUM
  15. OMEPRAZOLE. [Concomitant]
     Active Substance: OMEPRAZOLE
  16. SIMVASTATIN. [Concomitant]
     Active Substance: SIMVASTATIN
  17. TYVASO [Concomitant]
     Active Substance: TREPROSTINIL
  18. REVATIO [Concomitant]
     Active Substance: SILDENAFIL CITRATE
  19. KLONOPIN [Concomitant]
     Active Substance: CLONAZEPAM
  20. ALLOPURINOL. [Concomitant]
     Active Substance: ALLOPURINOL
  21. INSULIN [Concomitant]
     Active Substance: INSULIN NOS
  22. MAGNESIUM OXIDE. [Concomitant]
     Active Substance: MAGNESIUM OXIDE

REACTIONS (1)
  - Death [Fatal]

NARRATIVE: CASE EVENT DATE: 20151006
